FAERS Safety Report 6571410-1 (Version None)
Quarter: 2010Q1

REPORT INFORMATION
  Report Type: 
  Country: None (occurrence: None)
  Receive Date: 20100205
  Receipt Date: 20100126
  Transmission Date: 20100710
  Serious: Yes (Other)
  Sender: FDA-Public Use
  Company Number: JP-PFIZER INC-2010008884

PATIENT
  Age: 84 Year
  Sex: Male

DRUGS (1)
  1. ZYVOX [Suspect]
     Dosage: 1200MG /DAY
     Route: 042
     Dates: end: 20100119

REACTIONS (1)
  - HYPONATRAEMIA [None]
